FAERS Safety Report 7412896-X (Version None)
Quarter: 2011Q2

REPORT INFORMATION
  Report Type: 
  Country: None (occurrence: None)
  Receive Date: 20110413
  Receipt Date: 20110217
  Transmission Date: 20111010
  Serious: Yes (Hospitalization, Other)
  Sender: FDA-Public Use
  Company Number: US-BAYER-201038421NA

PATIENT
  Age: 42 Year
  Sex: Female
  Weight: 86.168 kg

DRUGS (2)
  1. LIPITOR [Concomitant]
     Dosage: UNK
     Dates: start: 19950101
  2. YASMIN [Suspect]
     Indication: VAGINAL HAEMORRHAGE
     Dosage: UNK
     Dates: start: 20010101, end: 20040201

REACTIONS (1)
  - VENA CAVA THROMBOSIS [None]
